FAERS Safety Report 21700147 (Version 3)
Quarter: 2022Q4

REPORT INFORMATION
  Report Type: Spontaneous
  Country: JP (occurrence: JP)
  Receive Date: 20221208
  Receipt Date: 20221228
  Transmission Date: 20230112
  Serious: Yes (Life-Threatening, Other)
  Sender: FDA-Public Use
  Company Number: JP-MALLINCKRODT-T202206291

PATIENT
  Age: 81 Year
  Sex: Male

DRUGS (2)
  1. AMITIZA [Suspect]
     Active Substance: LUBIPROSTONE
     Indication: Constipation
     Dosage: 24 MICROGRAM, DAILY
     Route: 048
     Dates: start: 20221122, end: 20221122
  2. DIETARY SUPPLEMENT\HERBALS [Suspect]
     Active Substance: DIETARY SUPPLEMENT\HERBALS
     Indication: Diarrhoea
     Dosage: 3 DOSAGE FORM, DAILY
     Route: 048
     Dates: start: 20221121, end: 20221121

REACTIONS (3)
  - Intestinal perforation [Recovered/Resolved]
  - Depressed level of consciousness [Recovered/Resolved]
  - Contraindicated product prescribed [Unknown]

NARRATIVE: CASE EVENT DATE: 20221122
